FAERS Safety Report 11800325 (Version 3)
Quarter: 2016Q3

REPORT INFORMATION
  Report Type: Report from Study
  Country: US (occurrence: US)
  Receive Date: 20151203
  Receipt Date: 20160816
  Transmission Date: 20161109
  Serious: Yes (Hospitalization)
  Sender: FDA-Public Use
  Company Number: US-PURDUE PHARMA-USA-2015-0127714

PATIENT
  Age: 44 Year
  Sex: Male

DRUGS (3)
  1. OXYCONTIN [Suspect]
     Active Substance: OXYCODONE HYDROCHLORIDE
     Indication: COLON CANCER
     Dosage: 30 UNK, UNK
     Route: 048
     Dates: start: 20160719
  2. OXYCONTIN [Suspect]
     Active Substance: OXYCODONE HYDROCHLORIDE
     Indication: RENAL CANCER
     Dosage: 15 MG, Q8H
     Route: 048
     Dates: start: 2015
  3. OXYCONTIN [Suspect]
     Active Substance: OXYCODONE HYDROCHLORIDE
     Indication: RECTAL CANCER
     Dosage: 15 MG, Q8H
     Route: 048

REACTIONS (7)
  - Metastases to lung [Not Recovered/Not Resolved]
  - Pain [Unknown]
  - Unevaluable event [Not Recovered/Not Resolved]
  - Renal disorder [Unknown]
  - International normalised ratio abnormal [Unknown]
  - Off label use [Not Recovered/Not Resolved]
  - Drug ineffective [Unknown]

NARRATIVE: CASE EVENT DATE: 201603
